FAERS Safety Report 11927045 (Version 1)
Quarter: 2016Q1

REPORT INFORMATION
  Report Type: Spontaneous
  Country: ES (occurrence: ES)
  Receive Date: 20160119
  Receipt Date: 20160119
  Transmission Date: 20160526
  Serious: Yes (Other)
  Sender: FDA-Public Use
  Company Number: ES-JNJFOC-20160112483

PATIENT
  Age: 51 Year
  Sex: Male

DRUGS (7)
  1. SIMPONI [Suspect]
     Active Substance: GOLIMUMAB
     Indication: ANKYLOSING SPONDYLITIS
     Route: 058
     Dates: start: 20150830, end: 20151030
  2. OMEPRAZOLE. [Concomitant]
     Active Substance: OMEPRAZOLE
     Route: 048
  3. ENALAPRIL CINFA [Concomitant]
     Route: 048
  4. ASPIRIN. [Concomitant]
     Active Substance: ASPIRIN
     Route: 048
  5. CIALIS [Concomitant]
     Active Substance: TADALAFIL
     Route: 048
  6. ALPROSTADIL. [Concomitant]
     Active Substance: ALPROSTADIL
     Dosage: UNK (STRENGTH REPORTED AS 3??MG/G , 4 APPLICATORS FOR SINGLE??USE (APPLICATORS BY BOLUS))
     Route: 061
  7. BROMAZEPAM [Concomitant]
     Active Substance: BROMAZEPAM
     Route: 048

REACTIONS (1)
  - Migraine [Recovered/Resolved]

NARRATIVE: CASE EVENT DATE: 201509
